FAERS Safety Report 6939626-X (Version None)
Quarter: 2010Q3

REPORT INFORMATION
  Report Type: 
  Country: None (occurrence: None)
  Receive Date: 20100820
  Receipt Date: 20100811
  Transmission Date: 20110219
  Serious: Yes (Hospitalization, Disabling)
  Sender: FDA-Public Use
  Company Number: 2010MA001645

PATIENT
  Age: 79 Year
  Sex: Female

DRUGS (3)
  1. RISPERIDONE [Suspect]
     Indication: PSYCHOTIC DISORDER
     Dosage: 6 MG;
  2. HALOPERIDOL [Suspect]
     Indication: PSYCHOTIC DISORDER
     Dosage: 10 MG
  3. OLANZAPINE [Suspect]
     Indication: PSYCHOTIC DISORDER
     Dosage: 15 MG;

REACTIONS (7)
  - ABASIA [None]
  - ACTIVITIES OF DAILY LIVING IMPAIRED [None]
  - AKATHISIA [None]
  - COGWHEEL RIGIDITY [None]
  - DYSKINESIA [None]
  - PSYCHOMOTOR HYPERACTIVITY [None]
  - PSYCHOTIC DISORDER [None]
